FAERS Safety Report 8144704-6 (Version None)
Quarter: 2012Q1

REPORT INFORMATION
  Report Type: 
  Country: None (occurrence: None)
  Receive Date: 20120214
  Receipt Date: 20120130
  Transmission Date: 20120608
  Serious: Yes (Hospitalization)
  Sender: FDA-Public Use
  Company Number: FK201200324

PATIENT
  Age: 67 Year
  Sex: Male
  Weight: 179 kg

DRUGS (8)
  1. IMODIUM (LOPERAMIDE HYDROCHLORIDE) (LOPERAMIDE HYDROCHLORIDE) [Concomitant]
  2. LEUCOVORIN CALCIUM [Suspect]
     Indication: COLON CANCER
     Dosage: 400 MG/M2, OVER 2 DAY
     Dates: start: 20111213, end: 20111213
  3. ZOFRAN [Concomitant]
  4. FLUOROURACIL [Suspect]
     Indication: COLON CANCER
     Dosage: 400 MG/M2, IVP ON DAY 1
     Dates: start: 20111213, end: 20111213
  5. AMLODIPINE [Concomitant]
  6. ELOXATIN [Suspect]
     Indication: COLON CANCER
     Dosage: 85 MG/M2, OVER 2 DAY
     Dates: start: 20111213, end: 20111213
  7. CELECOXIB [Suspect]
     Indication: COLON CANCER
     Dates: start: 20111213, end: 20111213
  8. CHARCOAL ACTIVATED (CHARCOAL ACTIVATED0 (CHARCOAL ACTIVATED) [Concomitant]

REACTIONS (1)
  - ENTEROCOLITIS [None]
